FAERS Safety Report 14569730 (Version 2)
Quarter: 2018Q1

REPORT INFORMATION
  Report Type: Spontaneous
  Country: NL (occurrence: NL)
  Receive Date: 20180224
  Receipt Date: 20180327
  Transmission Date: 20180509
  Serious: Yes (Other)
  Sender: FDA-Public Use
  Company Number: NL-009507513-1712NLD004655

PATIENT
  Age: 30 Year
  Sex: Female
  Weight: 90 kg

DRUGS (1)
  1. IMPLANON [Suspect]
     Active Substance: ETONOGESTREL
     Indication: CONTRACEPTION
     Dosage: 1 IMPLANT, UNK
     Route: 059
     Dates: start: 20171010, end: 20180119

REACTIONS (12)
  - Pain of skin [Recovered/Resolved]
  - Complication associated with device [Recovered/Resolved]
  - Excessive granulation tissue [Recovered/Resolved]
  - Complication associated with device [Recovered/Resolved]
  - Device difficult to use [Recovered/Resolved]
  - Implant site infection [Recovered/Resolved]
  - Device expulsion [Recovered/Resolved]
  - Implant site pain [Not Recovered/Not Resolved]
  - Skin hypertrophy [Recovered/Resolved]
  - Product quality issue [Unknown]
  - Device deployment issue [Recovered/Resolved]
  - Pain in extremity [Not Recovered/Not Resolved]

NARRATIVE: CASE EVENT DATE: 2017
